FAERS Safety Report 14239809 (Version 3)
Quarter: 2017Q4

REPORT INFORMATION
  Report Type: Spontaneous
  Country: BE (occurrence: BE)
  Receive Date: 20171130
  Receipt Date: 20171227
  Transmission Date: 20180321
  Serious: Yes (Death, Hospitalization, Other)
  Sender: FDA-Public Use
  Company Number: BE-ASTELLAS-2017US049758

PATIENT
  Age: 27 Year
  Sex: Female

DRUGS (14)
  1. CEFTAZIDIME. [Concomitant]
     Active Substance: CEFTAZIDIME
     Indication: PRODUCT USED FOR UNKNOWN INDICATION
     Dosage: UNK UNK, UNKNOWN FREQ.
     Route: 065
  2. POSACONAZOLE [Suspect]
     Active Substance: POSACONAZOLE
     Indication: ORAL CANDIDIASIS
     Dosage: UNK UNK, UNKNOWN FREQ.
     Route: 065
  3. CASPOFUNGIN [Concomitant]
     Active Substance: CASPOFUNGIN
     Indication: PRODUCT USED FOR UNKNOWN INDICATION
     Dosage: UNK UNK, UNKNOWN FREQ.
     Route: 065
  4. TACROLIMUS. [Suspect]
     Active Substance: TACROLIMUS
     Indication: PROPHYLAXIS AGAINST GRAFT VERSUS HOST DISEASE
     Dosage: UNK UNK, UNKNOWN FREQ.
     Route: 065
  5. FLUDARABINE PHOSPHATE. [Suspect]
     Active Substance: FLUDARABINE PHOSPHATE
     Indication: BONE MARROW CONDITIONING REGIMEN
     Dosage: UNK, UNKNOWN FREQ.
     Route: 065
  6. BUSULFAN. [Suspect]
     Active Substance: BUSULFAN
     Indication: BONE MARROW CONDITIONING REGIMEN
     Dosage: UNK UNK, UNKNOWN FREQ.
     Route: 065
  7. METRONIDAZOLE. [Concomitant]
     Active Substance: METRONIDAZOLE
     Indication: PRODUCT USED FOR UNKNOWN INDICATION
     Dosage: UNK UNK, UNKNOWN FREQ.
     Route: 065
  8. MYCOPHENOLATE MOFETIL. [Suspect]
     Active Substance: MYCOPHENOLATE MOFETIL
     Indication: PROPHYLAXIS AGAINST GRAFT VERSUS HOST DISEASE
     Dosage: UNK, UNKNOWN FREQ.
     Route: 065
  9. FOSCAVIR [Concomitant]
     Active Substance: FOSCARNET SODIUM
     Indication: BONE MARROW CONDITIONING REGIMEN
     Dosage: UNK, UNKNOWN FREQ.
     Route: 065
  10. TAZOCILLINE [Concomitant]
     Active Substance: PIPERACILLIN SODIUM\TAZOBACTAM SODIUM
     Indication: PRODUCT USED FOR UNKNOWN INDICATION
     Dosage: UNK UNK, UNKNOWN FREQ.
     Route: 065
  11. VALGANCICLOVIR HYDROCHLORIDE. [Suspect]
     Active Substance: VALGANCICLOVIR HYDROCHLORIDE
     Indication: CYTOMEGALOVIRUS INFECTION
     Dosage: UNK UNK, UNKNOWN FREQ.
     Route: 065
  12. ANTILYMPHOCYTE IMMUNOGLOBULIN (RABBIT) [Suspect]
     Active Substance: LAPINE T-LYMPHOCYTE IMMUNE GLOBULIN
     Indication: BONE MARROW CONDITIONING REGIMEN
     Dosage: UNK UNK, UNKNOWN FREQ.
     Route: 065
  13. CYCLOPHOSPHAMIDE. [Suspect]
     Active Substance: CYCLOPHOSPHAMIDE
     Indication: BONE MARROW CONDITIONING REGIMEN
     Dosage: UNK UNK, UNKNOWN FREQ.
     Route: 041
  14. URSODEOXYCHOLIC ACID [Concomitant]
     Active Substance: URSODIOL
     Indication: PRODUCT USED FOR UNKNOWN INDICATION
     Dosage: UNK UNK, UNKNOWN FREQ.
     Route: 065

REACTIONS (23)
  - Hepatic necrosis [Fatal]
  - Hepatomegaly [Unknown]
  - Pyrexia [Unknown]
  - Disseminated intravascular coagulation [Fatal]
  - Bone marrow toxicity [Unknown]
  - Toxicity to various agents [Unknown]
  - Cholestasis [Fatal]
  - Venoocclusive liver disease [Unknown]
  - Hepatic failure [Fatal]
  - Pancytopenia [Unknown]
  - Adenoviral hepatitis [Fatal]
  - Ascites [Unknown]
  - Liver function test abnormal [Unknown]
  - Diarrhoea [Unknown]
  - Oral candidiasis [Unknown]
  - Hepatocellular injury [Fatal]
  - Venous haemorrhage [Fatal]
  - Rash [Unknown]
  - Staphylococcal sepsis [Unknown]
  - Cytomegalovirus infection [Unknown]
  - Neutropenia [Unknown]
  - Oedema [Unknown]
  - Pain [Unknown]
